FAERS Safety Report 24056195 (Version 1)
Quarter: 2024Q3

REPORT INFORMATION
  Report Type: Spontaneous
  Country: PT (occurrence: PT)
  Receive Date: 20240705
  Receipt Date: 20240705
  Transmission Date: 20241016
  Serious: Yes (Other)
  Sender: MERCK
  Company Number: PT-009507513-2407PRT001707

PATIENT
  Age: 70 Year
  Sex: Male

DRUGS (2)
  1. PEMBROLIZUMAB [Suspect]
     Active Substance: PEMBROLIZUMAB
     Indication: Lung adenocarcinoma stage IV
     Dosage: UNK
     Dates: start: 201910, end: 202204
  2. PEMBROLIZUMAB [Suspect]
     Active Substance: PEMBROLIZUMAB
     Indication: Non-small cell lung cancer

REACTIONS (1)
  - Paratracheal lymphadenopathy [Unknown]

NARRATIVE: CASE EVENT DATE: 20220101
